FAERS Safety Report 5988900-2 (Version None)
Quarter: 2008Q4

REPORT INFORMATION
  Report Type: 
  Country: None (occurrence: None)
  Receive Date: 20081210
  Receipt Date: 20080908
  Transmission Date: 20090506
  Serious: Yes (Hospitalization)
  Sender: FDA-Public Use
  Company Number: US-AMGEN-STX285679

PATIENT
  Sex: Female
  Weight: 87.2 kg

DRUGS (14)
  1. ENBREL [Suspect]
     Indication: PSORIATIC ARTHROPATHY
     Route: 058
     Dates: start: 20060101
  2. ULTRAM [Concomitant]
     Route: 048
  3. FOLIC ACID [Concomitant]
  4. LIDODERM PATCH (ENDO PHARMACEUTICALS) [Concomitant]
     Route: 062
  5. MAGNESIUM SULFATE [Concomitant]
     Route: 065
     Dates: end: 20080424
  6. ZOCOR [Concomitant]
     Route: 048
  7. ZESTORETIC [Concomitant]
     Route: 048
  8. SYNTHROID [Concomitant]
     Route: 048
  9. VALTREX [Concomitant]
     Route: 048
     Dates: end: 20080424
  10. CYMBALTA [Concomitant]
     Route: 048
     Dates: end: 20080424
  11. VITAMIN CAP [Concomitant]
     Route: 048
     Dates: end: 20080424
  12. FISH OIL [Concomitant]
     Route: 048
     Dates: end: 20080424
  13. CALCIUM WITH VITAMIN D [Concomitant]
     Route: 048
     Dates: end: 20080424
  14. VITAMIN B-12 [Concomitant]
     Route: 065
     Dates: end: 20080424

REACTIONS (26)
  - AMNESIA [None]
  - ANXIETY [None]
  - BRONCHITIS [None]
  - CONSTIPATION [None]
  - DIARRHOEA [None]
  - DIZZINESS [None]
  - DYSPEPSIA [None]
  - DYSPHAGIA [None]
  - DYSPHONIA [None]
  - DYSPNOEA [None]
  - EPISTAXIS [None]
  - FATIGUE [None]
  - FIBROMYALGIA [None]
  - HEADACHE [None]
  - HYPOACUSIS [None]
  - INSOMNIA [None]
  - MALAISE [None]
  - MOOD ALTERED [None]
  - NAUSEA [None]
  - PALPITATIONS [None]
  - PSORIASIS [None]
  - PSORIATIC ARTHROPATHY [None]
  - RASH [None]
  - TINNITUS [None]
  - TONGUE CARCINOMA STAGE I [None]
  - WEIGHT INCREASED [None]
